FAERS Safety Report 20071696 (Version 2)
Quarter: 2021Q4

REPORT INFORMATION
  Report Type: Spontaneous
  Country: US (occurrence: None)
  Receive Date: 20211116
  Receipt Date: 20211222
  Transmission Date: 20220303
  Serious: Yes (Other)
  Sender: FDA-Public Use
  Company Number: US-FARMAPROD-202108-1450

PATIENT
  Age: 74 Year
  Sex: Female

DRUGS (14)
  1. OXERVATE [Suspect]
     Active Substance: CENEGERMIN-BKBJ
     Indication: Neurotrophic keratopathy
     Route: 047
     Dates: start: 20210809, end: 202110
  2. OXERVATE [Suspect]
     Active Substance: CENEGERMIN-BKBJ
     Route: 047
     Dates: start: 20211112
  3. BRIMONIDINE TARTRATE [Concomitant]
     Active Substance: BRIMONIDINE TARTRATE
  4. NIFEDIPINE [Concomitant]
     Active Substance: NIFEDIPINE
  5. MOXIFLOXACIN [Concomitant]
     Active Substance: MOXIFLOXACIN
  6. VALTREX [Concomitant]
     Active Substance: VALACYCLOVIR HYDROCHLORIDE
  7. DOXYCYCLINE HYCLATE [Concomitant]
     Active Substance: DOXYCYCLINE HYCLATE
  8. CLOPIDOGREL [Concomitant]
     Active Substance: CLOPIDOGREL BISULFATE
  9. METOPROLOL SUCCINATE [Concomitant]
     Active Substance: METOPROLOL SUCCINATE
  10. VALSARTAN [Concomitant]
     Active Substance: VALSARTAN
  11. FENOFIBRATE [Concomitant]
     Active Substance: FENOFIBRATE
  12. FEBUXOSTAT [Concomitant]
     Active Substance: FEBUXOSTAT
  13. PREDNISOLONE [Concomitant]
     Active Substance: PREDNISOLONE
  14. BETIMOL [Concomitant]
     Active Substance: TIMOLOL

REACTIONS (4)
  - Corneal transplant [Recovered/Resolved]
  - Corneal lesion [Unknown]
  - Gastroenteritis viral [Unknown]
  - Eye pain [Unknown]

NARRATIVE: CASE EVENT DATE: 20210801
